FAERS Safety Report 9893158 (Version 1)
Quarter: 2014Q1

REPORT INFORMATION
  Report Type: Spontaneous
  Country: US (occurrence: US)
  Receive Date: 20140213
  Receipt Date: 20140213
  Transmission Date: 20141002
  Serious: Yes (Other)
  Sender: FDA-Public Use
  Company Number: US-AMGEN-USASP2014009814

PATIENT
  Age: 66 Year
  Sex: Female

DRUGS (3)
  1. ENBREL [Suspect]
     Indication: PRODUCT USED FOR UNKNOWN INDICATION
     Dosage: 50 MG, QWK
     Route: 058
  2. CEPHALEXIN                         /00145501/ [Concomitant]
     Dosage: UNK
  3. ACYCLOVIR                          /00587301/ [Concomitant]
     Dosage: UNK

REACTIONS (1)
  - Lymphadenitis [Unknown]
